FAERS Safety Report 7659846-9 (Version None)
Quarter: 2011Q3

REPORT INFORMATION
  Report Type: 
  Country: None (occurrence: None)
  Receive Date: 20110805
  Receipt Date: 20110725
  Transmission Date: 20111222
  Serious: Yes (Hospitalization)
  Sender: FDA-Public Use
  Company Number: US-PFIZER INC-2011013902

PATIENT
  Sex: Male
  Weight: 78.912 kg

DRUGS (9)
  1. OXYCODONE [Concomitant]
     Indication: PAIN MANAGEMENT
     Dosage: UNK
     Dates: start: 20110103
  2. NERATINIB [Suspect]
     Dosage: 120 MG, FREQUENCY NOT PROVIDED
     Route: 048
     Dates: start: 20110131
  3. TEMSIROLIMUS [Suspect]
     Dosage: 50 MG, FREQUENCY NOT PROVIDED
     Route: 042
     Dates: start: 20110131
  4. COMPAZINE [Concomitant]
     Indication: PROPHYLAXIS OF NAUSEA AND VOMITING
     Dosage: UNK
     Dates: start: 20110103
  5. COLACE [Concomitant]
     Indication: CONSTIPATION
     Dosage: UNK
     Dates: start: 20110110
  6. OXYCONTIN [Concomitant]
     Indication: PAIN MANAGEMENT
     Dosage: UNK
     Dates: start: 20110110
  7. NERATINIB [Suspect]
     Indication: NON-SMALL CELL LUNG CANCER
     Dosage: 160 MG, 1X/DAY
     Route: 048
     Dates: start: 20110110, end: 20110118
  8. TEMSIROLIMUS [Suspect]
     Indication: NON-SMALL CELL LUNG CANCER
     Dosage: 75 MG, WEEKLY
     Route: 042
     Dates: start: 20110110, end: 20110118
  9. WARFARIN SODIUM [Concomitant]
     Indication: THROMBOPHLEBITIS SUPERFICIAL
     Dosage: UNK
     Dates: start: 20090319, end: 20110101

REACTIONS (6)
  - DEEP VEIN THROMBOSIS [None]
  - INTERNATIONAL NORMALISED RATIO INCREASED [None]
  - EPISTAXIS [None]
  - HYPOPHOSPHATAEMIA [None]
  - DIARRHOEA [None]
  - HYPOKALAEMIA [None]
